FAERS Safety Report 4743742-0 (Version None)
Quarter: 2005Q3

REPORT INFORMATION
  Report Type: 
  Country: None (occurrence: None)
  Receive Date: 20050812
  Receipt Date: 20050615
  Transmission Date: 20060218
  Serious: Yes (Hospitalization)
  Sender: FDA-Public Use
  Company Number: AU-GLAXOSMITHKLINE-B0385105A

PATIENT
  Age: 56 Year
  Sex: Female

DRUGS (2)
  1. ZYBAN [Suspect]
     Indication: DRUG USE FOR UNKNOWN INDICATION
     Dosage: 1TAB PER DAY
     Route: 048
     Dates: start: 20050607, end: 20050611
  2. VALERIAN [Concomitant]
     Dosage: 3U PER DAY
     Route: 048
     Dates: start: 20050601, end: 20050601

REACTIONS (5)
  - CHEST PAIN [None]
  - DIZZINESS [None]
  - HYPERTENSION [None]
  - PALPITATIONS [None]
  - SUPRAVENTRICULAR EXTRASYSTOLES [None]
